FAERS Safety Report 7969308-7 (Version None)
Quarter: 2011Q4

REPORT INFORMATION
  Report Type: 
  Country: None (occurrence: None)
  Receive Date: 20111209
  Receipt Date: 20111130
  Transmission Date: 20120403
  Serious: Yes (Hospitalization)
  Sender: FDA-Public Use
  Company Number: US-ASTRAZENECA-2011SE52015

PATIENT
  Age: 58 Year
  Sex: Male
  Weight: 90.7 kg

DRUGS (17)
  1. CATAPRES [Concomitant]
     Indication: HYPERTENSION
     Route: 048
  2. MOBIC [Concomitant]
  3. SEROQUEL XR [Suspect]
     Route: 048
  4. SEROQUEL XR [Suspect]
     Indication: BIPOLAR DISORDER
     Route: 048
     Dates: start: 20080101
  5. ZEN-X [Concomitant]
     Indication: GASTROOESOPHAGEAL REFLUX DISEASE
     Route: 048
  6. ZELEXAL [Concomitant]
     Indication: DEPRESSION
     Route: 048
  7. LAPHARMAKRYL [Concomitant]
     Dosage: 20/12 MG DAILY
     Route: 048
  8. CARDIZEM LA [Concomitant]
  9. CELEXIL [Concomitant]
     Indication: DEPRESSION
     Route: 048
  10. DEPAKOTE [Suspect]
     Dosage: 250 MG IN THE MORNING AND 500 MG AT NIGHT
     Dates: start: 20100901
  11. XANAX [Suspect]
     Indication: NERVOUSNESS
     Dosage: 0.5 MG TID PRN
  12. ZELEXAL [Concomitant]
     Route: 048
  13. TRAZODONE HCL [Concomitant]
     Dosage: AT NIGHT
  14. BARBUXIXN [Concomitant]
     Indication: ANXIETY
     Route: 048
  15. DEPO-TESTOSTERONE [Concomitant]
     Dosage: 200 MG/ML EVERY MONTH
  16. CARDIZINE [Concomitant]
     Indication: HYPERTENSION
     Route: 048
  17. ZESTORETIC [Concomitant]
     Dosage: 20/12.5 MG TWO TIMES A DAY

REACTIONS (13)
  - HEART RATE INCREASED [None]
  - BLOOD PRESSURE INCREASED [None]
  - DIARRHOEA [None]
  - DYSPNOEA [None]
  - DRUG DOSE OMISSION [None]
  - MENTAL DISORDER [None]
  - HYPERTENSION [None]
  - BORDERLINE PERSONALITY DISORDER [None]
  - ANXIETY [None]
  - DEPRESSION [None]
  - ABDOMINAL DISCOMFORT [None]
  - HYPERLIPIDAEMIA [None]
  - HYPOGONADISM [None]
